FAERS Safety Report 5414895-6 (Version None)
Quarter: 2007Q3

REPORT INFORMATION
  Report Type: 
  Country: None (occurrence: None)
  Receive Date: 20070813
  Receipt Date: 20070802
  Transmission Date: 20080115
  Serious: Yes (Life-Threatening)
  Sender: FDA-Public Use
  Company Number: 2007SP014710

PATIENT
  Age: 56 Year
  Sex: Female

DRUGS (4)
  1. BETAMETHASONE SODIUM PHOSPHATE [Suspect]
     Indication: HYPERSENSITIVITY
     Dosage: 24 MG; QD
     Dates: start: 20070718, end: 20070718
  2. BETAMETHASONE SODIUM PHOSPHATE [Suspect]
     Indication: PROPHYLAXIS
     Dosage: 24 MG; QD
     Dates: start: 20070718, end: 20070718
  3. RANITIDINE [Suspect]
     Dosage: 50 MG; QD; IV
     Route: 042
     Dates: start: 20070718, end: 20070718
  4. ANTINEOPLASTIC AGENTS [Concomitant]

REACTIONS (5)
  - ANAPHYLACTIC SHOCK [None]
  - BLOOD PRESSURE DECREASED [None]
  - COLD SWEAT [None]
  - FEELING ABNORMAL [None]
  - MALAISE [None]
